FAERS Safety Report 6068694-5 (Version None)
Quarter: 2009Q1

REPORT INFORMATION
  Report Type: 
  Country: None (occurrence: None)
  Receive Date: 20090206
  Receipt Date: 20090129
  Transmission Date: 20090719
  Serious: Yes (Death)
  Sender: FDA-Public Use
  Company Number: B0556134A

PATIENT
  Age: 14 Year
  Sex: Female

DRUGS (5)
  1. RELENZA [Suspect]
     Indication: DRUG USE FOR UNKNOWN INDICATION
     Route: 055
     Dates: start: 20090118
  2. PA [Concomitant]
     Route: 048
  3. MUCODYNE [Concomitant]
     Route: 048
  4. BRUFEN [Concomitant]
     Route: 048
  5. CALONAL [Concomitant]
     Route: 048

REACTIONS (5)
  - CARDIAC ARREST [None]
  - DEATH [None]
  - LOSS OF CONSCIOUSNESS [None]
  - RESPIRATORY ARREST [None]
  - VOMITING [None]
